FAERS Safety Report 15495052 (Version 1)
Quarter: 2018Q4

REPORT INFORMATION
  Report Type: Spontaneous
  Country: US (occurrence: US)
  Receive Date: 20181012
  Receipt Date: 20181012
  Transmission Date: 20190205
  Serious: No
  Sender: FDA-Public Use
  Company Number: US-PFIZER INC-2018406593

PATIENT

DRUGS (1)
  1. ADVIL LIQUI-GELS [Suspect]
     Active Substance: IBUPROFEN
     Dosage: UNK

REACTIONS (5)
  - Hypersensitivity [Unknown]
  - Reaction to excipient [Unknown]
  - Throat irritation [Unknown]
  - Ear pruritus [Unknown]
  - Tinnitus [Unknown]
